FAERS Safety Report 14018416 (Version 1)
Quarter: 2017Q3

REPORT INFORMATION
  Report Type: Spontaneous
  Country: US (occurrence: US)
  Receive Date: 20170927
  Receipt Date: 20170927
  Transmission Date: 20171128
  Serious: No
  Sender: FDA-Public Use
  Company Number: None

PATIENT
  Age: 63 Year
  Sex: Female
  Weight: 90 kg

DRUGS (11)
  1. VERAPIMAL [Concomitant]
  2. NAPROXAN [Concomitant]
  3. KARAFATE [Concomitant]
  4. NORCO [Concomitant]
     Active Substance: ACETAMINOPHEN\HYDROCODONE BITARTRATE
  5. KOZAR [Concomitant]
  6. LASIK [Concomitant]
     Active Substance: FUROSEMIDE\POTASSIUM CHLORIDE
  7. CLARITIN [Concomitant]
     Active Substance: LORATADINE
  8. BENEDYL [Concomitant]
  9. POTASSIUM [Concomitant]
     Active Substance: POTASSIUM
  10. AVONEX [Suspect]
     Active Substance: INTERFERON BETA-1A
     Indication: MULTIPLE SCLEROSIS
     Dosage: ?          OTHER STRENGTH:MCG;QUANTITY:1 INJECTION(S);OTHER FREQUENCY:ONCE A WEEK;?
     Route: 030
     Dates: start: 20140501
  11. ZOFRAN [Concomitant]
     Active Substance: ONDANSETRON HYDROCHLORIDE

REACTIONS (4)
  - Dysstasia [None]
  - Hypersensitivity [None]
  - Tremor [None]
  - Incoherent [None]

NARRATIVE: CASE EVENT DATE: 20170924
